FAERS Safety Report 6710708-0 (Version None)
Quarter: 2010Q2

REPORT INFORMATION
  Report Type: 
  Country: None (occurrence: None)
  Receive Date: 20100504
  Receipt Date: 20100504
  Transmission Date: 20101027
  Serious: Yes (Other)
  Sender: FDA-Public Use
  Company Number: None

PATIENT
  Age: 7 Month
  Sex: Female
  Weight: 9.0719 kg

DRUGS (1)
  1. INFANT TYLENOL 80MG MCNEIL [Suspect]
     Indication: TEETHING
     Dosage: 0.8 EVERY 6 HR PO
     Route: 048
     Dates: start: 20100420, end: 20100423

REACTIONS (3)
  - LETHARGY [None]
  - PRODUCT FORMULATION ISSUE [None]
  - PRODUCT QUALITY ISSUE [None]
